FAERS Safety Report 6687156-5 (Version None)
Quarter: 2010Q2

REPORT INFORMATION
  Report Type: 
  Country: None (occurrence: None)
  Receive Date: 20100419
  Receipt Date: 20100415
  Transmission Date: 20101027
  Serious: Yes (Life-Threatening, Hospitalization)
  Sender: FDA-Public Use
  Company Number: FR-SANOFI-AVENTIS-A02200901984

PATIENT
  Age: 58 Year
  Sex: Male
  Weight: 78 kg

DRUGS (10)
  1. OXALIPLATIN [Suspect]
     Dosage: UNIT DOSE: 5 MG/ML
     Route: 042
     Dates: start: 20090528, end: 20090528
  2. CETUXIMAB [Suspect]
     Dosage: UNIT DOSE: 5 MG/ML
     Route: 042
     Dates: start: 20090528, end: 20090701
  3. FLUOROURACIL [Suspect]
     Dosage: UNIT DOSE: 3000 MG/M2
     Route: 042
     Dates: start: 20090528, end: 20090528
  4. DURAGESIC-100 [Suspect]
     Dosage: DOSE TEXT: 75 MCG /3 DAYSUNIT DOSE: 25 MCG
     Route: 062
     Dates: start: 20090528, end: 20090528
  5. EUPRESSYL [Concomitant]
     Indication: DRUG USE FOR UNKNOWN INDICATION
     Dosage: UNIT DOSE: 60 MG
     Route: 048
     Dates: start: 20090401
  6. ISOPTIN [Concomitant]
     Indication: DRUG USE FOR UNKNOWN INDICATION
     Dosage: UNIT DOSE: 250 MG
     Route: 048
     Dates: start: 20090401
  7. HYPERIUM [Concomitant]
     Indication: DRUG USE FOR UNKNOWN INDICATION
     Dosage: UNIT DOSE: 1 MG
     Route: 048
     Dates: start: 20090401
  8. KARDEGIC /FRA/ [Concomitant]
     Dosage: UNIT DOSE: 75 MG
     Route: 048
     Dates: start: 20090401
  9. TAHOR [Concomitant]
     Dosage: UNIT DOSE: 20 MG
     Route: 048
     Dates: start: 20090401
  10. OMIX [Concomitant]
     Dosage: UNIT DOSE: .4 MG
     Route: 048
     Dates: start: 20090401

REACTIONS (2)
  - COMA [None]
  - CONVULSION [None]
